FAERS Safety Report 7635594-6 (Version None)
Quarter: 2011Q3

REPORT INFORMATION
  Report Type: 
  Country: None (occurrence: None)
  Receive Date: 20110718
  Receipt Date: 20110706
  Transmission Date: 20111222
  Serious: Yes (Other)
  Sender: FDA-Public Use
  Company Number: 2011FR0216

PATIENT
  Sex: Female

DRUGS (2)
  1. TACROLIMUS [Concomitant]
  2. KINERET [Suspect]
     Indication: GOUT
     Dosage: 100 MG (100 MG,1 IN 1 D

REACTIONS (2)
  - RENAL FUNCTION TEST ABNORMAL [None]
  - NEUTROPENIA [None]
